FAERS Safety Report 10704761 (Version 3)
Quarter: 2015Q1

REPORT INFORMATION
  Report Type: Other
  Country: IT (occurrence: IT)
  Receive Date: 20141104
  Receipt Date: 20150211
  Transmission Date: 20150721
  Serious: Yes (Hospitalization, Other)
  Sender: FDA-Public Use
  Company Number: IT-APOTEX-2014AP005333

PATIENT
  Age: 44 Year
  Sex: Female

DRUGS (3)
  1. MEDROL [Concomitant]
     Active Substance: METHYLPREDNISOLONE
     Indication: PRODUCT USED FOR UNKNOWN INDICATION
     Dosage: 1 DF, UNK
     Route: 048
  2. CLARITHROMYCIN. [Suspect]
     Active Substance: CLARITHROMYCIN
     Indication: ASTHMA
     Dosage: 2 DF, DAILY
     Route: 048
     Dates: start: 20141001, end: 20141003
  3. MEDROL [Concomitant]
     Active Substance: METHYLPREDNISOLONE
     Dosage: GRADUALLY REDUCE FROM 1 DF
     Route: 065

REACTIONS (1)
  - Pruritus generalised [Recovering/Resolving]

NARRATIVE: CASE EVENT DATE: 20141002
